FAERS Safety Report 8075772-8 (Version None)
Quarter: 2012Q1

REPORT INFORMATION
  Report Type: 
  Country: None (occurrence: None)
  Receive Date: 20120125
  Receipt Date: 20120125
  Transmission Date: 20120608
  Serious: Yes (Hospitalization)
  Sender: FDA-Public Use
  Company Number: None

PATIENT
  Age: 63 Year
  Sex: Male
  Weight: 101.36 kg

DRUGS (2)
  1. ERLOTINIB HYDROCHLORIDE [Suspect]
     Indication: POLYCYTHAEMIA VERA
     Dosage: 150MG PO(047) DAILY
     Route: 048
     Dates: start: 20120105, end: 20120106
  2. COUMADIN [Concomitant]

REACTIONS (3)
  - DIARRHOEA HAEMORRHAGIC [None]
  - COLITIS [None]
  - HAEMATEMESIS [None]
